FAERS Safety Report 18655486 (Version 4)
Quarter: 2020Q4

REPORT INFORMATION
  Report Type: Spontaneous
  Country: US (occurrence: US)
  Receive Date: 20201223
  Receipt Date: 20201230
  Transmission Date: 20210114
  Serious: No
  Sender: FDA-Public Use
  Company Number: US-PFIZER INC-2020492107

PATIENT
  Sex: Male

DRUGS (3)
  1. GENOTROPIN [Suspect]
     Active Substance: SOMATROPIN
     Dosage: UNK
  2. SOMATROPIN. [Suspect]
     Active Substance: SOMATROPIN
     Dosage: UNK
  3. SOMATROGON [Suspect]
     Active Substance: SOMATROGON
     Dosage: UNK

REACTIONS (1)
  - Injection site mass [Unknown]
